FAERS Safety Report 20013737 (Version 13)
Quarter: 2024Q1

REPORT INFORMATION
  Report Type: Spontaneous
  Country: JP (occurrence: JP)
  Receive Date: 20211029
  Receipt Date: 20240106
  Transmission Date: 20240409
  Serious: Yes (Death, Hospitalization, Other)
  Sender: FDA-Public Use
  Company Number: JP-UNITED THERAPEUTICS-UNT-2019-010638

PATIENT
  Sex: Male
  Weight: 16.7 kg

DRUGS (32)
  1. REMODULIN [Suspect]
     Active Substance: TREPROSTINIL
     Indication: Pulmonary arterial hypertension
     Dosage: 0.001 ?G/KG, CONTINUING
     Route: 058
     Dates: start: 20190612, end: 201906
  2. REMODULIN [Suspect]
     Active Substance: TREPROSTINIL
     Dosage: 0.003 ?G/KG, CONTINUING
     Route: 058
     Dates: start: 201906, end: 201906
  3. REMODULIN [Suspect]
     Active Substance: TREPROSTINIL
     Dosage: 0.013 ?G/KG, CONTINUING
     Route: 058
     Dates: start: 201906, end: 2019
  4. REMODULIN [Suspect]
     Active Substance: TREPROSTINIL
     Dosage: 0.032 ?G/KG, CONTINUING (APPROXIMATELY)
     Route: 058
     Dates: start: 2019, end: 2019
  5. REMODULIN [Suspect]
     Active Substance: TREPROSTINIL
     Dosage: 0.030 ?G/KG, CONTINUING
     Route: 058
     Dates: start: 2019, end: 2019
  6. REMODULIN [Suspect]
     Active Substance: TREPROSTINIL
     Dosage: 0.032 ?G/KG, CONTINUING
     Route: 058
     Dates: start: 2019
  7. REMODULIN [Suspect]
     Active Substance: TREPROSTINIL
     Dosage: 0.035 ?G/KG, CONTINUING
     Route: 058
     Dates: end: 2020
  8. REMODULIN [Suspect]
     Active Substance: TREPROSTINIL
     Dosage: 0.038 ?G/KG, CONTINUING
     Route: 058
     Dates: start: 2020, end: 2020
  9. REMODULIN [Suspect]
     Active Substance: TREPROSTINIL
     Dosage: 0.046 ?G/KG, CONTINUING
     Route: 058
     Dates: start: 2020, end: 2020
  10. REMODULIN [Suspect]
     Active Substance: TREPROSTINIL
     Dosage: 0.043 ?G/KG, CONTINUING
     Route: 058
     Dates: start: 2020
  11. REMODULIN [Suspect]
     Active Substance: TREPROSTINIL
     Dosage: 0.048 ?G/KG, CONTINUING
     Route: 058
     Dates: end: 2021
  12. REMODULIN [Suspect]
     Active Substance: TREPROSTINIL
     Dosage: 0.049 ?G/KG, CONTINUING
     Route: 058
     Dates: start: 2021
  13. SELEXIPAG [Concomitant]
     Active Substance: SELEXIPAG
     Indication: Pulmonary arterial hypertension
     Dosage: UNK
     Route: 048
  14. SELEXIPAG [Concomitant]
     Active Substance: SELEXIPAG
     Dosage: 1.2 MG, QD
     Route: 048
  15. FUROSEMIDE [Concomitant]
     Active Substance: FUROSEMIDE
     Indication: Pulmonary arterial hypertension
     Dosage: UNK
     Route: 048
  16. SPIRONOLACTONE [Concomitant]
     Active Substance: SPIRONOLACTONE
     Indication: Pulmonary arterial hypertension
     Dosage: UNK
     Route: 048
  17. OPSUMIT [Concomitant]
     Active Substance: MACITENTAN
     Indication: Pulmonary arterial hypertension
     Dosage: UNK
     Route: 048
     Dates: start: 201606
  18. UPTRAVI [Concomitant]
     Active Substance: SELEXIPAG
     Indication: Pulmonary arterial hypertension
     Dosage: UNK
     Route: 048
     Dates: start: 201711, end: 201907
  19. ADEMPAS [Concomitant]
     Active Substance: RIOCIGUAT
     Indication: Pulmonary arterial hypertension
     Dosage: 3 MG, QD
     Route: 048
     Dates: start: 201903
  20. ASPIRIN [Concomitant]
     Active Substance: ASPIRIN
     Indication: Pulmonary arterial hypertension
     Dosage: UNK
     Route: 048
  21. LEVOTHYROXINE SODIUM [Concomitant]
     Active Substance: LEVOTHYROXINE SODIUM
     Indication: Product used for unknown indication
     Dosage: UNK
     Route: 048
  22. POTASSIUM GLUCONATE [Concomitant]
     Active Substance: POTASSIUM GLUCONATE
     Indication: Product used for unknown indication
     Dosage: UNK
     Route: 048
  23. HYDROCHLOROTHIAZIDE [Concomitant]
     Active Substance: HYDROCHLOROTHIAZIDE
     Indication: Pulmonary arterial hypertension
     Dosage: UNK
     Route: 048
  24. COCARL [Concomitant]
     Active Substance: ACETAMINOPHEN
     Indication: Prophylaxis
     Dosage: 960 MG, QD
     Route: 048
     Dates: end: 20210121
  25. MAGNESIUM OXIDE [Concomitant]
     Active Substance: MAGNESIUM OXIDE
     Indication: Product used for unknown indication
     Dosage: UNK
     Route: 048
     Dates: end: 20200611
  26. MAGNESIUM OXIDE [Concomitant]
     Active Substance: MAGNESIUM OXIDE
     Dosage: UNK
     Route: 048
     Dates: start: 20200806, end: 20201029
  27. SODIUM CHLORIDE [Concomitant]
     Active Substance: SODIUM CHLORIDE
     Indication: Product used for unknown indication
     Dosage: UNK
     Route: 048
     Dates: end: 20190711
  28. MONTELUKAST [Concomitant]
     Active Substance: MONTELUKAST SODIUM
     Indication: Product used for unknown indication
     Dosage: UNK
     Route: 048
     Dates: end: 20190711
  29. MOSAPRIDE CITRATE [Concomitant]
     Active Substance: MOSAPRIDE CITRATE
     Indication: Product used for unknown indication
     Dosage: UNK
     Route: 048
     Dates: end: 20191211
  30. FAMOTIDINE [Concomitant]
     Active Substance: FAMOTIDINE
     Indication: Prophylaxis
     Dosage: UNK
     Route: 048
     Dates: start: 20190614, end: 20190711
  31. DIETARY SUPPLEMENT\PROBIOTICS [Concomitant]
     Active Substance: DIETARY SUPPLEMENT\PROBIOTICS NOS
     Indication: Product used for unknown indication
     Dosage: UNK
     Route: 048
     Dates: start: 20200611, end: 20200709
  32. NAPROXEN SODIUM [Concomitant]
     Active Substance: NAPROXEN\NAPROXEN SODIUM
     Indication: Prophylaxis
     Dosage: UNK
     Route: 048
     Dates: start: 20210623

REACTIONS (15)
  - Pulmonary hypertension [Fatal]
  - Injection site infection [Recovered/Resolved]
  - Pneumonia [Recovered/Resolved]
  - Injection site pain [Not Recovered/Not Resolved]
  - Localised oedema [Recovering/Resolving]
  - Peripheral venous disease [Unknown]
  - Injection site induration [Not Recovered/Not Resolved]
  - Injection site pruritus [Recovering/Resolving]
  - Diarrhoea [Recovering/Resolving]
  - Vomiting [Recovering/Resolving]
  - Upper respiratory tract inflammation [Recovered/Resolved]
  - Pain [Unknown]
  - Injection site abscess [Unknown]
  - Nausea [Unknown]
  - Epistaxis [Unknown]

NARRATIVE: CASE EVENT DATE: 20190101
